FAERS Safety Report 6256875-7 (Version None)
Quarter: 2009Q3

REPORT INFORMATION
  Report Type: 
  Country: None (occurrence: None)
  Receive Date: 20090706
  Receipt Date: 20090629
  Transmission Date: 20100115
  Serious: Yes (Death, Hospitalization)
  Sender: FDA-Public Use
  Company Number: PHHY2009CA08162

PATIENT
  Sex: Female

DRUGS (4)
  1. CLOZARIL [Suspect]
     Indication: SCHIZOPHRENIA
     Dosage: UNK
     Route: 048
     Dates: start: 19950101
  2. CLOZARIL [Suspect]
     Indication: SCHIZOAFFECTIVE DISORDER
     Dosage: 100 MG AM, 200 MG HS
     Route: 048
     Dates: start: 20010809, end: 20090305
  3. ATENOLOL [Concomitant]
     Dosage: 100 MG, QD
     Route: 048
  4. FOSAMAX [Concomitant]
     Dosage: 70 MG, QW
     Route: 048

REACTIONS (8)
  - ATRIAL FIBRILLATION [None]
  - CARDIAC FAILURE CONGESTIVE [None]
  - COMA [None]
  - LACTIC ACIDOSIS [None]
  - MECHANICAL VENTILATION [None]
  - OVERDOSE [None]
  - PNEUMONIA [None]
  - RHABDOMYOLYSIS [None]
